FAERS Safety Report 18552917 (Version 1)
Quarter: 2020Q4

REPORT INFORMATION
  Report Type: Spontaneous
  Country: FR (occurrence: FR)
  Receive Date: 20201127
  Receipt Date: 20201127
  Transmission Date: 20210114
  Serious: Yes (Hospitalization)
  Sender: FDA-Public Use
  Company Number: FR-ACCORD-209380

PATIENT
  Age: 55 Year
  Sex: Female
  Weight: 63 kg

DRUGS (12)
  1. INEXIUM [Concomitant]
     Active Substance: ESOMEPRAZOLE
     Dosage: STRENGTH: 40 MG
  2. ACTISKENAN [Concomitant]
     Active Substance: MORPHINE SULFATE
  3. ACUPAN [Concomitant]
     Active Substance: NEFOPAM HYDROCHLORIDE
  4. LOXEN [Concomitant]
     Dosage: 50 MG
  5. PACLITAXEL KABI [Concomitant]
     Active Substance: PACLITAXEL
     Dosage: 6 MG/ML
  6. FOLIC ACID. [Concomitant]
     Active Substance: FOLIC ACID
  7. POLARAMINE [Concomitant]
     Active Substance: DEXCHLORPHENIRAMINE MALEATE
  8. CORTANCYL [Concomitant]
     Active Substance: PREDNISONE
     Dosage: 5 MG
  9. CARBOPLATIN ACCORD [Suspect]
     Active Substance: CARBOPLATIN
     Indication: LUNG ADENOCARCINOMA
     Dosage: STRENGTH: 10 MG / ML
     Route: 041
     Dates: start: 20201016, end: 20201016
  10. SKENAN [Concomitant]
     Active Substance: MORPHINE SULFATE
  11. RANITIDINE. [Concomitant]
     Active Substance: RANITIDINE
  12. METHYLPREDNISOLONE. [Concomitant]
     Active Substance: METHYLPREDNISOLONE

REACTIONS (1)
  - Acute kidney injury [Recovering/Resolving]

NARRATIVE: CASE EVENT DATE: 20201028
